FAERS Safety Report 4769856-7 (Version None)
Quarter: 2005Q3

REPORT INFORMATION
  Report Type: 
  Country: None (occurrence: None)
  Receive Date: 20050912
  Receipt Date: 20050708
  Transmission Date: 20060218
  Serious: No
  Sender: FDA-Public Use
  Company Number: 2005-01391

PATIENT
  Age: 81 Year
  Sex: Female

DRUGS (8)
  1. VELCADE [Suspect]
     Indication: MULTIPLE MYELOMA
     Dates: start: 20050510, end: 20050603
  2. CLONIDINE HCL [Concomitant]
  3. METHIMAZOLE [Concomitant]
  4. VERAPAMIL [Concomitant]
  5. HYDROCHLOROTHIAZDE (HYDROCHLOROTHIAZIDE) [Concomitant]
  6. EX-LAX ^NOVARTIS^ (SENNA) [Concomitant]
  7. CALCIUM (CALCIUM) [Concomitant]
  8. MULTIVITAMINS (ERGOCALCIFEROL, ASCORBIC ACID, PANTHENOL, NICOTINAMIDE, [Concomitant]

REACTIONS (1)
  - RASH [None]
